FAERS Safety Report 26086141 (Version 1)
Quarter: 2025Q4

REPORT INFORMATION
  Report Type: Spontaneous
  Country: CN (occurrence: CN)
  Receive Date: 20251125
  Receipt Date: 20251125
  Transmission Date: 20260117
  Serious: Yes (Other)
  Sender: BAXTER
  Company Number: None

PATIENT
  Age: 64 Year
  Sex: Male
  Weight: 58 kg

DRUGS (6)
  1. CYCLOPHOSPHAMIDE [Suspect]
     Active Substance: CYCLOPHOSPHAMIDE
     Indication: Neoplasm
     Dosage: 1.4 G, QD, D1
     Route: 041
     Dates: start: 20251102, end: 20251102
  2. SODIUM CHLORIDE [Suspect]
     Active Substance: SODIUM CHLORIDE
     Dosage: 100 ML, QD, D1 WITH CYCLOPHOSPHAMIDE
     Route: 041
     Dates: start: 20251102, end: 20251102
  3. SODIUM CHLORIDE [Suspect]
     Active Substance: SODIUM CHLORIDE
     Dosage: 20 ML, QD D1 WITH VINDESINE SULFATE
     Route: 041
     Dates: start: 20251102, end: 20251102
  4. SODIUM CHLORIDE [Suspect]
     Active Substance: SODIUM CHLORIDE
     Dosage: 500 ML, QD, D1-2 WITH ETOPOSIDE
     Route: 041
     Dates: start: 20251102, end: 20251103
  5. ETOPOSIDE [Suspect]
     Active Substance: ETOPOSIDE
     Indication: Neoplasm
     Dosage: 0.18 G, QD
     Route: 041
     Dates: start: 20251102, end: 20251103
  6. VINDESINE SULFATE [Suspect]
     Active Substance: VINDESINE SULFATE
     Indication: Neoplasm
     Dosage: 4 MG, QD, D1
     Route: 040
     Dates: start: 20251102, end: 20251102

REACTIONS (1)
  - Myelosuppression [Recovering/Resolving]

NARRATIVE: CASE EVENT DATE: 20251104
